FAERS Safety Report 12790956 (Version 1)
Quarter: 2016Q3

REPORT INFORMATION
  Report Type: Spontaneous
  Country: US (occurrence: US)
  Receive Date: 20160929
  Receipt Date: 20160929
  Transmission Date: 20161109
  Serious: No
  Sender: FDA-Public Use
  Company Number: US-PFIZER INC-2016449298

PATIENT
  Age: 62 Year
  Sex: Male
  Weight: 104.33 kg

DRUGS (10)
  1. VITAMIN D [Concomitant]
     Active Substance: CHOLECALCIFEROL
     Indication: VITAMIN D DEFICIENCY
     Dosage: 1000 IU, 2X/DAY
     Route: 048
     Dates: start: 201607
  2. DULOXETINE. [Concomitant]
     Active Substance: DULOXETINE
     Indication: PAIN
  3. NORCO [Concomitant]
     Active Substance: ACETAMINOPHEN\HYDROCODONE BITARTRATE
     Indication: PAIN
     Dosage: [HYDROCODONE BITARTRATE 10MG]/[PARACETAMOL 325MG], AS NEEDED; TAKES ABOUT THREE TABLETS A DAY
  4. ARIPIPRAZOLE. [Concomitant]
     Active Substance: ARIPIPRAZOLE
     Indication: DEPRESSION
     Dosage: 2.5 MG(1/2 OF 5MG TABLET), 1X/DAY
     Route: 048
  5. ACETAMINOPHEN PM [Concomitant]
     Active Substance: ACETAMINOPHEN\DIPHENHYDRAMINE HYDROCHLORIDE
     Indication: SLEEP DISORDER
     Dosage: [DIPHENHYDRAMINE HYDROCHLORIDE 25MG]/[PARACETAMOL 500MG], 1/2 TABLET AT NIGHT
     Route: 048
     Dates: start: 2013
  6. LYRICA [Suspect]
     Active Substance: PREGABALIN
     Indication: NEUROPATHY PERIPHERAL
     Dosage: 50 MG, 3X/DAY
     Route: 048
     Dates: start: 201606, end: 20160914
  7. VERAPAMIL [Concomitant]
     Active Substance: VERAPAMIL HYDROCHLORIDE
     Indication: BLOOD PRESSURE ABNORMAL
     Dosage: 80 MG, 2X/DAY
     Route: 048
  8. HYDROCHLOROTHIAZIDE. [Concomitant]
     Active Substance: HYDROCHLOROTHIAZIDE
     Indication: BLOOD PRESSURE ABNORMAL
     Dosage: 12.5 MG(1/2 OF 25MG TABLET), 1X/DAY
     Route: 048
  9. DULOXETINE. [Concomitant]
     Active Substance: DULOXETINE
     Indication: DEPRESSION
     Dosage: 60 MG, 2X/DAY
     Route: 048
  10. LOSARTAN. [Concomitant]
     Active Substance: LOSARTAN
     Indication: GLUCOSE TOLERANCE IMPAIRED
     Dosage: 50 MG, 2X/DAY
     Route: 048

REACTIONS (12)
  - Irritability [Unknown]
  - Pain [Unknown]
  - Depression [Unknown]
  - Depressed mood [Unknown]
  - Condition aggravated [Unknown]
  - Joint swelling [Unknown]
  - Decreased activity [Unknown]
  - Withdrawal syndrome [Not Recovered/Not Resolved]
  - Pre-existing condition improved [Unknown]
  - Poor quality sleep [Unknown]
  - Personality change [Unknown]
  - Therapeutic response unexpected [Unknown]

NARRATIVE: CASE EVENT DATE: 201609
